FAERS Safety Report 21372736 (Version 1)
Quarter: 2022Q3

REPORT INFORMATION
  Report Type: Report from Study
  Country: US (occurrence: US)
  Receive Date: 20220924
  Receipt Date: 20220924
  Transmission Date: 20221027
  Serious: Yes (Other)
  Sender: FDA-Public Use
  Company Number: US-ABBVIE-4129512

PATIENT
  Sex: Female

DRUGS (1)
  1. CREON [Suspect]
     Active Substance: PANCRELIPASE AMYLASE\PANCRELIPASE LIPASE\PANCRELIPASE PROTEASE
     Indication: Product used for unknown indication
     Dosage: 36,000 UNIT CAPSULE-TAKE 2-3 CAPSULES BY MOUTH WITH MEALS AND TAKE 1 CAPSULE BY MOUTH WITH SNACKS.
     Route: 048

REACTIONS (3)
  - Vascular graft [Unknown]
  - Headache [Unknown]
  - Abdominal pain upper [Unknown]
